FAERS Safety Report 8243287-X (Version None)
Quarter: 2012Q1

REPORT INFORMATION
  Report Type: 
  Country: None (occurrence: None)
  Receive Date: 20120314
  Receipt Date: 20110119
  Transmission Date: 20120608
  Serious: Yes (Other)
  Sender: FDA-Public Use
  Company Number: PHHY2011US05343

PATIENT
  Sex: Male

DRUGS (3)
  1. GEODON [Suspect]
  2. FANAPT [Suspect]
     Dosage: 8 MG, BID, ORAL
  3. HALDOL [Suspect]

REACTIONS (2)
  - LOSS OF CONSCIOUSNESS [None]
  - ORTHOSTATIC HYPOTENSION [None]
